FAERS Safety Report 12006175 (Version 1)
Quarter: 2016Q1

REPORT INFORMATION
  Report Type: Report from Study
  Country: CO (occurrence: CO)
  Receive Date: 20160204
  Receipt Date: 20160204
  Transmission Date: 20160526
  Serious: Yes (Other)
  Sender: FDA-Public Use
  Company Number: CO-JNJFOC-20160123888

PATIENT
  Age: 18 Year
  Sex: Female
  Weight: 46 kg

DRUGS (7)
  1. REMICADE [Suspect]
     Active Substance: INFLIXIMAB
     Indication: COLITIS ULCERATIVE
     Route: 042
     Dates: start: 20140925
  2. VALPROIC ACID. [Concomitant]
     Active Substance: VALPROIC ACID
     Route: 065
  3. LORATADINE. [Concomitant]
     Active Substance: LORATADINE
     Route: 065
  4. FOLIC ACID. [Concomitant]
     Active Substance: FOLIC ACID
     Route: 065
  5. LAMOTRIGINE. [Concomitant]
     Active Substance: LAMOTRIGINE
     Route: 065
  6. ATROPINE. [Concomitant]
     Active Substance: ATROPINE
     Route: 065
  7. MESALAZINE [Concomitant]
     Active Substance: MESALAMINE
     Route: 065

REACTIONS (5)
  - Skin lesion [Recovering/Resolving]
  - Incorrect dose administered [Unknown]
  - Face oedema [Recovering/Resolving]
  - Nasal vestibulitis [Recovering/Resolving]
  - Off label use [Unknown]

NARRATIVE: CASE EVENT DATE: 20140925
